FAERS Safety Report 5941811-0 (Version None)
Quarter: 2008Q4

REPORT INFORMATION
  Report Type: 
  Country: None (occurrence: None)
  Receive Date: 20081105
  Receipt Date: 20081101
  Transmission Date: 20090506
  Serious: Yes (Death)
  Sender: FDA-Public Use
  Company Number: PHHY2008BR26844

PATIENT
  Age: 86 Year
  Sex: Male

DRUGS (3)
  1. FORASEQ [Suspect]
     Indication: LUNG DISORDER
     Dosage: 1 DF, QD
  2. MANTIDAN [Concomitant]
     Indication: PARKINSON'S DISEASE
     Dosage: UNK
     Route: 048
  3. DIGOXIN [Concomitant]
     Indication: CARDIAC DISORDER
     Route: 048

REACTIONS (2)
  - CARDIAC DISORDER [None]
  - LUNG DISORDER [None]
